FAERS Safety Report 17416031 (Version 2)
Quarter: 2020Q1

REPORT INFORMATION
  Report Type: Report from Study
  Country: CA (occurrence: CA)
  Receive Date: 20200213
  Receipt Date: 20200220
  Transmission Date: 20200409
  Serious: Yes (Other)
  Sender: FDA-Public Use
  Company Number: CA-JNJFOC-20190628234

PATIENT
  Age: 30 Year
  Sex: Female
  Weight: 61.24 kg

DRUGS (3)
  1. STELARA [Suspect]
     Active Substance: USTEKINUMAB
     Indication: CROHN^S DISEASE
     Route: 042
     Dates: start: 20190621
  2. STELARA [Suspect]
     Active Substance: USTEKINUMAB
     Dosage: PFS
     Route: 058
     Dates: start: 20190621
  3. STELARA [Suspect]
     Active Substance: USTEKINUMAB
     Dosage: PFS
     Route: 058
     Dates: start: 20190621

REACTIONS (9)
  - Arthralgia [Recovered/Resolved]
  - Infusion related reaction [Recovered/Resolved]
  - Migraine [Recovered/Resolved]
  - Injection site swelling [Recovered/Resolved]
  - Off label use [Unknown]
  - Paraesthesia [Recovered/Resolved]
  - Product use issue [Unknown]
  - Crohn^s disease [Recovered/Resolved]
  - Rash [Recovered/Resolved]

NARRATIVE: CASE EVENT DATE: 2019
